FAERS Safety Report 19503611 (Version 2)
Quarter: 2021Q4

REPORT INFORMATION
  Report Type: Spontaneous
  Country: NL (occurrence: NL)
  Receive Date: 20210708
  Receipt Date: 20211220
  Transmission Date: 20220303
  Serious: Yes (Death)
  Sender: FDA-Public Use
  Company Number: NL-ASTRAZENECA-2021A574519

PATIENT

DRUGS (1)
  1. ZOLADEX [Suspect]
     Active Substance: GOSERELIN ACETATE
     Indication: Prostate cancer
     Dosage: 10.8 MG, EVERY THREE MONTHS
     Route: 058
     Dates: start: 20201027

REACTIONS (1)
  - Death [Fatal]

NARRATIVE: CASE EVENT DATE: 20210513
